FAERS Safety Report 8836529 (Version 1)
Quarter: 2012Q4

REPORT INFORMATION
  Report Type: Spontaneous
  Country: US (occurrence: None)
  Receive Date: 20121009
  Receipt Date: 20121009
  Transmission Date: 20130627
  Serious: Yes (Hospitalization)
  Sender: FDA-Public Use
  Company Number: 2012SP002649

PATIENT
  Age: 63 Year
  Sex: Male
  Weight: 101.3 kg

DRUGS (15)
  1. FLUOROURACIL [Suspect]
     Indication: PANCREATIC CANCER
     Route: 042
     Dates: start: 20120801, end: 20120904
  2. IRINOTECAN [Suspect]
     Route: 042
     Dates: start: 20120801, end: 20120904
  3. OXALIPLATIN [Suspect]
     Route: 042
     Dates: start: 20120801, end: 20120904
  4. LEUCOVORIN CALCIUM [Suspect]
     Route: 042
     Dates: start: 20120801, end: 20120904
  5. ASPIRIN [Concomitant]
  6. CRESTOR [Concomitant]
  7. LIDODERM [Concomitant]
  8. LORAZEPAM [Concomitant]
  9. MAGNESIUM OXIDE [Concomitant]
  10. NEUPOGEN [Concomitant]
  11. OMEPRAZOLE [Concomitant]
  12. OXYCODONE/APAP /01601701/ [Concomitant]
  13. PLAVIX [Concomitant]
  14. PROCHLORPERAZINE [Concomitant]
  15. SPIRONOLACTONE [Concomitant]

REACTIONS (6)
  - Febrile neutropenia [None]
  - Blood bilirubin increased [None]
  - Anaemia [None]
  - Cholangitis [None]
  - Device occlusion [None]
  - White blood cell count decreased [None]
